FAERS Safety Report 4382675-9 (Version None)
Quarter: 2004Q2

REPORT INFORMATION
  Report Type: 
  Country: None (occurrence: None)
  Receive Date: 20040616
  Receipt Date: 20040607
  Transmission Date: 20050107
  Serious: Yes (Hospitalization)
  Sender: FDA-Public Use
  Company Number: TAP2004Q00619

PATIENT
  Age: 29 Year
  Sex: Female
  Weight: 106.1417 kg

DRUGS (8)
  1. LUPRON DEPOT-3 [Suspect]
     Indication: ENDOMETRIOSIS
     Dosage: 3.75 MG, UNKNOWN, INTRAMUSCULAR
     Route: 030
     Dates: start: 20040101
  2. SOLU-MEDROL [Suspect]
     Indication: ASTHMA
     Dosage: 125 MG, ONCE, INTRAMUSCULAR
     Route: 030
     Dates: start: 20040504, end: 20040504
  3. ADVAIR (SERETIDE MITE) [Suspect]
     Indication: ASTHMA
     Dosage: 1 PUFF, 1 IN 1 D, INHALATION
  4. PREDNISONE TAB [Suspect]
     Indication: ASTHMA
     Dosage: 40 MG, 1 IN 2 D, PER ORAL
     Route: 048
  5. VENTOLIN INHALER (SALBUTAMOL) [Concomitant]
  6. PREVACID [Concomitant]
  7. BENTYL [Concomitant]
  8. SYNTHROID [Concomitant]

REACTIONS (6)
  - ALOPECIA [None]
  - ASTHMA [None]
  - BRONCHITIS [None]
  - DRUG INTERACTION [None]
  - DYSMENORRHOEA [None]
  - METRORRHAGIA [None]
